FAERS Safety Report 8398217-7 (Version None)
Quarter: 2012Q2

REPORT INFORMATION
  Report Type: 
  Country: None (occurrence: None)
  Receive Date: 20120531
  Receipt Date: 20120523
  Transmission Date: 20120825
  Serious: Yes (Hospitalization, Other)
  Sender: FDA-Public Use
  Company Number: PHHY2012MX044933

PATIENT
  Sex: Female

DRUGS (3)
  1. CRESTOR [Concomitant]
     Indication: BLOOD CHOLESTEROL
     Dosage: 0.5 DF, DAILY
  2. LYRICA [Concomitant]
     Indication: PAIN
     Dosage: 1 DF, DAILY
     Dates: start: 20080101
  3. RASILEZ [Suspect]
     Indication: HYPERTENSION
     Dosage: 1 DF, DAILY
     Dates: start: 20080101

REACTIONS (2)
  - ROAD TRAFFIC ACCIDENT [None]
  - HIP FRACTURE [None]
